FAERS Safety Report 13836187 (Version 2)
Quarter: 2017Q3

REPORT INFORMATION
  Report Type: Report from Study
  Country: US (occurrence: US)
  Receive Date: 20170804
  Receipt Date: 20170808
  Transmission Date: 20171127
  Serious: Yes (Hospitalization, Other)
  Sender: FDA-Public Use
  Company Number: US-BRISTOL-MYERS SQUIBB COMPANY-BMS-2017-068889

PATIENT
  Age: 65 Year
  Sex: Female
  Weight: 97.52 kg

DRUGS (1)
  1. NIVOLUMAB [Suspect]
     Active Substance: NIVOLUMAB
     Indication: HODGKIN^S DISEASE
     Route: 065

REACTIONS (2)
  - Device related infection [Unknown]
  - Administration site extravasation [Unknown]

NARRATIVE: CASE EVENT DATE: 20170724
